FAERS Safety Report 7827840-0 (Version None)
Quarter: 2011Q4

REPORT INFORMATION
  Report Type: 
  Country: None (occurrence: None)
  Receive Date: 20111020
  Receipt Date: 20111011
  Transmission Date: 20120403
  Serious: Yes (Other)
  Sender: FDA-Public Use
  Company Number: US-PURDUE-USA-2011-0075797

PATIENT
  Age: 82 Year
  Sex: Female

DRUGS (7)
  1. INSULIN [Suspect]
     Indication: DIABETES MELLITUS
  2. OMEGA 3                            /00931501/ [Suspect]
     Indication: PRODUCT USED FOR UNKNOWN INDICATION
  3. COLACE CAPSULES 100 MG [Suspect]
     Indication: CONSTIPATION
  4. VITAMIN D [Suspect]
     Indication: PRODUCT USED FOR UNKNOWN INDICATION
  5. MECLIZINE [Suspect]
     Indication: PRODUCT USED FOR UNKNOWN INDICATION
     Dosage: 25 MG, UNK
  6. VITAMIN C                          /00008001/ [Suspect]
     Indication: PRODUCT USED FOR UNKNOWN INDICATION
  7. COLACE CAPSULES 100 MG [Suspect]
     Indication: BOWEL MOVEMENT IRREGULARITY
     Dosage: 300 MG, DAILY PRN
     Route: 048

REACTIONS (3)
  - BLOOD GLUCOSE DECREASED [None]
  - MIDDLE INSOMNIA [None]
  - HYPERHIDROSIS [None]
